FAERS Safety Report 21732011 (Version 1)
Quarter: 2022Q4

REPORT INFORMATION
  Report Type: Report from Study
  Country: CN (occurrence: CN)
  Receive Date: 20221215
  Receipt Date: 20221215
  Transmission Date: 20230113
  Serious: Yes (Hospitalization, Other)
  Sender: FDA-Public Use
  Company Number: CN-BRISTOL-MYERS SQUIBB COMPANY-2022-149946

PATIENT
  Age: 20 Year
  Sex: Male

DRUGS (16)
  1. AZACITIDINE [Suspect]
     Active Substance: AZACITIDINE
     Indication: Acute myeloid leukaemia
     Dosage: DAYS 1 TO 5 OF EACH 28-DAY CYCLE
     Route: 058
     Dates: start: 20220630
  2. VENETOCLAX [Suspect]
     Active Substance: VENETOCLAX
     Indication: Acute myeloid leukaemia
     Route: 048
     Dates: start: 20220630, end: 20220921
  3. VENETOCLAX [Suspect]
     Active Substance: VENETOCLAX
     Route: 048
     Dates: start: 20221016
  4. POSACONAZOLE EG [Concomitant]
     Indication: Infection prophylaxis
     Dates: start: 20220728, end: 20220927
  5. ACYCLOVIR [Concomitant]
     Active Substance: ACYCLOVIR
     Indication: Infection prophylaxis
     Dates: start: 20220728, end: 20220927
  6. LANSOPRAZOLE [Concomitant]
     Active Substance: LANSOPRAZOLE
     Indication: Prophylaxis
     Dates: start: 20220820, end: 20220927
  7. CALCIUM CARBONATE\CHOLECALCIFEROL [Concomitant]
     Active Substance: CALCIUM CARBONATE\CHOLECALCIFEROL
     Indication: Hypocalcaemia
     Dates: start: 20220820, end: 20220927
  8. CYSTEINE HYDROCHLORIDE;GLYCYRRHIZINATE POTASSIUM [Concomitant]
     Indication: Hepatitis
     Dates: start: 20220820, end: 20220927
  9. SULFAMETHOXAZOLE\TRIMETHOPRIM [Concomitant]
     Active Substance: SULFAMETHOXAZOLE\TRIMETHOPRIM
     Indication: Cardiovascular event prophylaxis
     Dates: start: 20220823, end: 20220927
  10. EPL [POLYENE PHOSPHATIDYLCHOLINE] [Concomitant]
     Indication: Prophylaxis
     Dates: start: 20220826, end: 20220927
  11. ENTECAVIR EE [Concomitant]
     Indication: Antiviral prophylaxis
     Dates: start: 20220831, end: 20220927
  12. RUXOLITINIB [Concomitant]
     Active Substance: RUXOLITINIB
     Indication: Graft versus host disease
     Dates: start: 20220824, end: 20220922
  13. RUXOLITINIB [Concomitant]
     Active Substance: RUXOLITINIB
     Dates: start: 20220923, end: 20220923
  14. RUTIN [TROXERUTIN] [Concomitant]
     Indication: Haemorrhage
     Dates: start: 20220903, end: 20220927
  15. INOSINE BMJ [Concomitant]
     Indication: Haemorrhage
     Dates: start: 20220903, end: 20220927
  16. VITAMIN B1 [Concomitant]
     Active Substance: THIAMINE HYDROCHLORIDE
     Indication: Haemorrhage
     Dates: start: 20220903, end: 20220927

REACTIONS (1)
  - Retinitis [Not Recovered/Not Resolved]

NARRATIVE: CASE EVENT DATE: 20220928
